FAERS Safety Report 9540954 (Version 3)
Quarter: 2014Q2

REPORT INFORMATION
  Report Type: Spontaneous
  Country: GB (occurrence: GB)
  Receive Date: 20130921
  Receipt Date: 20140414
  Transmission Date: 20141212
  Serious: Yes (Death, Other)
  Sender: FDA-Public Use
  Company Number: GB-JNJFOC-20130910736

PATIENT
  Age: 23 Year
  Sex: Male

DRUGS (2)
  1. IBUPROFEN [Suspect]
     Indication: PRODUCT USED FOR UNKNOWN INDICATION
     Dosage: 2-4 TABLETS
     Route: 048
  2. NUTRITIONAL SUPPLEMENT [Suspect]
     Indication: PRODUCT USED FOR UNKNOWN INDICATION
     Route: 065

REACTIONS (8)
  - Myocardial infarction [Fatal]
  - Intestinal ischaemia [Fatal]
  - Idiosyncratic drug reaction [Fatal]
  - Gastrointestinal haemorrhage [Fatal]
  - Exercise tolerance decreased [Fatal]
  - Blood potassium increased [Fatal]
  - Hyperthermia [Fatal]
  - Dehydration [Fatal]
